FAERS Safety Report 6517560-7 (Version None)
Quarter: 2009Q4

REPORT INFORMATION
  Report Type: 
  Country: None (occurrence: None)
  Receive Date: 20091224
  Receipt Date: 20091216
  Transmission Date: 20100525
  Serious: Yes (Hospitalization)
  Sender: FDA-Public Use
  Company Number: CH-ROCHE-675286

PATIENT
  Age: 5 Year
  Sex: Male
  Weight: 22 kg

DRUGS (2)
  1. TAMIFLU [Suspect]
     Indication: INFLUENZA SEROLOGY NEGATIVE
     Dosage: 2 MG/KG, AS 3 ML OF A SOLUTION WITH 15 MG/ML
     Route: 048
     Dates: start: 20091204, end: 20091204
  2. BELLADONNA [Concomitant]
     Indication: VIRAL INFECTION
     Route: 048

REACTIONS (1)
  - COMPLEX PARTIAL SEIZURES [None]
